FAERS Safety Report 20483776 (Version 2)
Quarter: 2022Q2

REPORT INFORMATION
  Report Type: Report from Study
  Country: BR (occurrence: BR)
  Receive Date: 20220217
  Receipt Date: 20220617
  Transmission Date: 20220721
  Serious: Yes (Hospitalization, Other)
  Sender: FDA-Public Use
  Company Number: BR-BIOGEN-2022BI01095513

PATIENT
  Age: 38 Year
  Sex: Male

DRUGS (2)
  1. TECFIDERA [Suspect]
     Active Substance: DIMETHYL FUMARATE
     Indication: Multiple sclerosis
     Route: 048
     Dates: start: 202005
  2. TECFIDERA [Suspect]
     Active Substance: DIMETHYL FUMARATE
     Route: 048
     Dates: start: 2021, end: 202202

REACTIONS (8)
  - Multiple sclerosis relapse [Recovered/Resolved with Sequelae]
  - Diabetes mellitus inadequate control [Unknown]
  - Malaise [Recovered/Resolved]
  - Drug ineffective [Not Recovered/Not Resolved]
  - Rhinorrhoea [Recovered/Resolved]
  - Flushing [Recovered/Resolved]
  - Burning sensation [Recovered/Resolved]
  - Feeling hot [Recovered/Resolved]

NARRATIVE: CASE EVENT DATE: 20201201
